FAERS Safety Report 23675951 (Version 1)
Quarter: 2024Q1

REPORT INFORMATION
  Report Type: Spontaneous
  Country: CN (occurrence: CN)
  Receive Date: 20240327
  Receipt Date: 20240327
  Transmission Date: 20240410
  Serious: Yes (Death, Life-Threatening, Hospitalization, Other)
  Sender: FDA-Public Use
  Company Number: CN-ENDO PHARMACEUTICALS INC-2024-001351

PATIENT
  Age: 18 Year
  Sex: Female

DRUGS (2)
  1. DIAZEPAM [Suspect]
     Active Substance: DIAZEPAM
     Indication: Ventricular extrasystoles
     Dosage: UNK UNKNOWN, UNKNOWN (TOOK LARGE DOSES-EXACT DOSE UNKNOWN)
     Route: 048
  2. PROPAFENONE [Suspect]
     Active Substance: PROPAFENONE
     Indication: Depression
     Dosage: UNK UNKNOWN, UNKNOWN (TOOK LARGE DOSES-EXACT DOSE UNKNOWN)
     Route: 048

REACTIONS (16)
  - Cardiac arrest [Fatal]
  - Intentional overdose [Fatal]
  - Completed suicide [Fatal]
  - Respiratory alkalosis [Unknown]
  - Metabolic acidosis [Unknown]
  - Ejection fraction decreased [Unknown]
  - Electrocardiogram QT prolonged [Unknown]
  - Electrocardiogram QRS complex prolonged [Unknown]
  - Electrocardiogram P wave abnormal [Unknown]
  - Bradycardia [Unknown]
  - Oxygen saturation decreased [Unknown]
  - Bundle branch block right [Unknown]
  - Atrioventricular block first degree [Unknown]
  - Seizure [Unknown]
  - Syncope [Unknown]
  - Off label use [Unknown]
